FAERS Safety Report 17307093 (Version 1)
Quarter: 2020Q1

REPORT INFORMATION
  Report Type: Report from Study
  Country: US (occurrence: US)
  Receive Date: 20200123
  Receipt Date: 20200123
  Transmission Date: 20200409
  Serious: Yes (Hospitalization, Other)
  Sender: FDA-Public Use
  Company Number: US-GILEAD-2020-0445213

PATIENT
  Age: 68 Year
  Sex: Male

DRUGS (4)
  1. AZTREONAM LYSINE [Suspect]
     Active Substance: AZTREONAM LYSINE
     Indication: PSEUDOMONAS INFECTION
     Dosage: 75 MG, TID
     Route: 055
  2. AZTREONAM LYSINE [Suspect]
     Active Substance: AZTREONAM LYSINE
     Indication: BRONCHIECTASIS
  3. MEROPENEM. [Concomitant]
     Active Substance: MEROPENEM
     Indication: LUNG DISORDER
     Dosage: UNKNOWN
  4. COLISTIN [Suspect]
     Active Substance: COLISTIN
     Indication: CHRONIC RESPIRATORY DISEASE
     Dosage: UNKNOWN
     Route: 055

REACTIONS (7)
  - Cardiac failure [Not Recovered/Not Resolved]
  - Chronic kidney disease [Not Recovered/Not Resolved]
  - Oxygen saturation decreased [Unknown]
  - Diabetes mellitus [Not Recovered/Not Resolved]
  - Chronic respiratory disease [Not Recovered/Not Resolved]
  - Dyspnoea [Unknown]
  - Off label use [Not Recovered/Not Resolved]
